FAERS Safety Report 6771570-3 (Version None)
Quarter: 2010Q2

REPORT INFORMATION
  Report Type: 
  Country: None (occurrence: None)
  Receive Date: 20100611
  Receipt Date: 20100602
  Transmission Date: 20101027
  Serious: No
  Sender: FDA-Public Use
  Company Number: 005903

PATIENT
  Sex: Female

DRUGS (1)
  1. KEPPRA [Suspect]
     Indication: EPILEPSY
     Dosage: (1.25 G BID ORAL)
     Route: 048
     Dates: start: 20090301

REACTIONS (4)
  - CONVULSION [None]
  - RESPIRATORY ARREST [None]
  - SUDDEN UNEXPLAINED DEATH IN EPILEPSY [None]
  - TREATMENT NONCOMPLIANCE [None]
